FAERS Safety Report 7811010-6 (Version None)
Quarter: 2011Q4

REPORT INFORMATION
  Report Type: 
  Country: None (occurrence: None)
  Receive Date: 20111012
  Receipt Date: 20110926
  Transmission Date: 20120403
  Serious: Yes (Hospitalization, Other)
  Sender: FDA-Public Use
  Company Number: USA/USA/11/0021403

PATIENT
  Age: 10 Year
  Sex: Male

DRUGS (5)
  1. FAMOTIDINE [Suspect]
     Indication: PRODUCT USED FOR UNKNOWN INDICATION
     Dosage: 20 MG, 2 IN 1 D, ORAL
     Route: 048
  2. LITHIUM CARBONATE [Suspect]
     Indication: BIPOLAR DISORDER
     Dosage: SEE IMAGE
     Route: 048
  3. RISPERIDONE [Suspect]
     Indication: BIPOLAR DISORDER
     Dosage: ORAL; 4 MG, AT BEDTIME, ORAL
     Route: 048
  4. MELATONIN (MELATONIN) [Suspect]
     Indication: PRODUCT USED FOR UNKNOWN INDICATION
     Dosage: 3 MG, AT BEDTIME, ORAL
     Route: 048
  5. CLONIDINE [Suspect]
     Indication: PRODUCT USED FOR UNKNOWN INDICATION
     Dosage: 0.1 MG, 3 IN 1 D, ORAL
     Route: 048

REACTIONS (4)
  - DRUG INTERACTION [None]
  - AGGRESSION [None]
  - DYSPHEMIA [None]
  - SUICIDAL IDEATION [None]
